FAERS Safety Report 4471915-3 (Version None)
Quarter: 2004Q4

REPORT INFORMATION
  Report Type: 
  Country: None (occurrence: None)
  Receive Date: 20041007
  Receipt Date: 20041001
  Transmission Date: 20050328
  Serious: Yes (Life-Threatening)
  Sender: FDA-Public Use
  Company Number: PT-2004-032831

PATIENT
  Age: 71 Year
  Sex: Male

DRUGS (1)
  1. ULTRAVIST 370 [Suspect]
     Indication: COMPUTERISED TOMOGRAM
     Dosage: 1 DOSE, INTRAVENOUS
     Route: 042
     Dates: start: 20040913, end: 20040913

REACTIONS (1)
  - ANAPHYLACTIC SHOCK [None]
